FAERS Safety Report 6635441-5 (Version None)
Quarter: 2010Q1

REPORT INFORMATION
  Report Type: 
  Country: None (occurrence: None)
  Receive Date: 20100315
  Receipt Date: 20090817
  Transmission Date: 20100710
  Serious: Yes (Other)
  Sender: FDA-Public Use
  Company Number: US-ABBOTT-09P-163-0589177-00

PATIENT
  Sex: Female

DRUGS (1)
  1. DEPAKOTE [Suspect]
     Indication: DRUG USE FOR UNKNOWN INDICATION

REACTIONS (10)
  - ALOPECIA [None]
  - CONTUSION [None]
  - DIPLOPIA [None]
  - EPILEPSY [None]
  - HALLUCINATION [None]
  - INSOMNIA [None]
  - LOSS OF EMPLOYMENT [None]
  - REACTION TO AZO-DYES [None]
  - SUICIDAL IDEATION [None]
  - WEIGHT INCREASED [None]
